FAERS Safety Report 4594504-9 (Version None)
Quarter: 2005Q1

REPORT INFORMATION
  Report Type: 
  Country: None (occurrence: None)
  Receive Date: 20050301
  Receipt Date: 20040402
  Transmission Date: 20050727
  Serious: No
  Sender: FDA-Public Use
  Company Number: US-GLAXOSMITHKLINE-A0505676A

PATIENT
  Age: 59 Year
  Sex: Female

DRUGS (2)
  1. VALTREX [Suspect]
     Dosage: 500MG PER DAY
     Route: 048
     Dates: start: 20000101
  2. FOSAMAX [Concomitant]

REACTIONS (4)
  - GENITAL PRURITUS FEMALE [None]
  - INSOMNIA [None]
  - PRURITUS ANI [None]
  - SYSTEMIC CANDIDA [None]
